FAERS Safety Report 4540733-X (Version None)
Quarter: 2004Q4

REPORT INFORMATION
  Report Type: 
  Country: None (occurrence: None)
  Receive Date: 20041222
  Receipt Date: 20041207
  Transmission Date: 20050328
  Serious: Yes (Other)
  Sender: FDA-Public Use
  Company Number: GBS041216135

PATIENT
  Age: 26 Year
  Sex: Female

DRUGS (4)
  1. FLUOXETINE [Suspect]
     Indication: DEPRESSION
     Dosage: 20 MG
     Dates: start: 20041029, end: 20041115
  2. LOGYNON [Concomitant]
  3. SUMATRIPTAN [Concomitant]
  4. DICLOFENAC [Concomitant]

REACTIONS (2)
  - ANXIETY [None]
  - SELF-INJURIOUS IDEATION [None]
